FAERS Safety Report 10591231 (Version 1)
Quarter: 2014Q4

REPORT INFORMATION
  Report Type: Spontaneous
  Country: US (occurrence: US)
  Receive Date: 20141118
  Receipt Date: 20141118
  Transmission Date: 20150529
  Serious: No
  Sender: FDA-Public Use
  Company Number: US-PFIZER INC-2014314826

PATIENT
  Sex: Female

DRUGS (1)
  1. LYRICA [Suspect]
     Active Substance: PREGABALIN
     Dosage: 50 MG IN MORNING AND 100 MG AT NIGHT

REACTIONS (4)
  - Drug intolerance [Unknown]
  - Oral pain [Unknown]
  - Dry mouth [Unknown]
  - Swelling [Unknown]
